FAERS Safety Report 8457450-6 (Version None)
Quarter: 2012Q2

REPORT INFORMATION
  Report Type: 
  Country: None (occurrence: None)
  Receive Date: 20120621
  Receipt Date: 20120619
  Transmission Date: 20120825
  Serious: Yes (Death)
  Sender: FDA-Public Use
  Company Number: NL-MERCK-1206USA03023

PATIENT
  Age: 90 Year
  Sex: Female
  Weight: 72 kg

DRUGS (4)
  1. OXAZEPAM [Concomitant]
     Route: 065
  2. AMLODIPINE MALEATE [Concomitant]
     Route: 065
  3. NITROFURANTOIN [Suspect]
     Indication: CYSTITIS
     Route: 065
     Dates: start: 20000101, end: 20091201
  4. HYZAAR [Suspect]
     Route: 048
     Dates: start: 19800101, end: 20091101

REACTIONS (1)
  - PULMONARY FIBROSIS [None]
